FAERS Safety Report 9984664 (Version 1)
Quarter: 2014Q1

REPORT INFORMATION
  Report Type: Spontaneous
  Country: US (occurrence: US)
  Receive Date: 20140307
  Receipt Date: 20140307
  Transmission Date: 20141002
  Serious: No
  Sender: FDA-Public Use
  Company Number: US-GLAXOSMITHKLINE-A1057498A

PATIENT
  Age: 62 Year
  Sex: Male

DRUGS (5)
  1. BREO ELLIPTA [Suspect]
     Indication: CHRONIC OBSTRUCTIVE PULMONARY DISEASE
     Dosage: 1PUFF PER DAY
     Route: 055
     Dates: start: 20140116
  2. MULTI VITAMIN [Concomitant]
  3. SPIRIVA [Concomitant]
  4. VITAMIN C [Concomitant]
  5. VITAMIN B [Concomitant]

REACTIONS (1)
  - Drug ineffective [Not Recovered/Not Resolved]
